FAERS Safety Report 10753390 (Version 3)
Quarter: 2015Q2

REPORT INFORMATION
  Report Type: Report from Study
  Country: TW (occurrence: TW)
  Receive Date: 20150130
  Receipt Date: 20150526
  Transmission Date: 20150821
  Serious: No
  Sender: FDA-Public Use
  Company Number: PHHY2014TW028771

PATIENT
  Age: 71 Year
  Sex: Female

DRUGS (26)
  1. RBC [Concomitant]
     Active Substance: HUMAN RED BLOOD CELL
     Indication: PRODUCT USED FOR UNKNOWN INDICATION
     Dosage: 1 U
     Route: 042
     Dates: start: 20140307, end: 20140307
  2. PLATELET [Concomitant]
     Dosage: 2 U, UNK
     Route: 042
     Dates: start: 20140307, end: 20140307
  3. PLATELET [Concomitant]
     Dosage: 2 U, UNK
     Route: 042
     Dates: start: 20140512, end: 20140512
  4. PLATELET [Concomitant]
     Dosage: 2 U, UNK
     Route: 042
     Dates: start: 20140428, end: 20140428
  5. PLATELET [Concomitant]
     Dosage: 2 U, UNK
     Route: 042
     Dates: start: 20140329, end: 20140329
  6. RBC [Concomitant]
     Active Substance: HUMAN RED BLOOD CELL
     Dosage: 2 U
     Route: 042
     Dates: start: 20140309, end: 20140309
  7. RBC [Concomitant]
     Active Substance: HUMAN RED BLOOD CELL
     Dosage: 2 U
     Route: 042
     Dates: start: 20140428, end: 20140428
  8. AMN107 [Suspect]
     Active Substance: NILOTINIB
     Dosage: 450 OT
     Route: 048
     Dates: start: 20140220, end: 20140307
  9. AMN107 [Suspect]
     Active Substance: NILOTINIB
     Dosage: 150 UNK, UNK
     Route: 048
     Dates: start: 20150316, end: 20150406
  10. RBC [Concomitant]
     Active Substance: HUMAN RED BLOOD CELL
     Dosage: 1 U
     Route: 042
     Dates: start: 20140310, end: 20140310
  11. RBC [Concomitant]
     Active Substance: HUMAN RED BLOOD CELL
     Dosage: 2 U
     Route: 042
     Dates: start: 20140526, end: 20140526
  12. PLATELET [Concomitant]
     Indication: PRODUCT USED FOR UNKNOWN INDICATION
     Dosage: 1 U, UNK
     Route: 042
     Dates: start: 20140309, end: 20140309
  13. RBC [Concomitant]
     Active Substance: HUMAN RED BLOOD CELL
     Dosage: 2 U
     Route: 042
     Dates: start: 20140318, end: 20140318
  14. AMN107 [Suspect]
     Active Substance: NILOTINIB
     Indication: CHRONIC MYELOID LEUKAEMIA
     Dosage: 600 OT, UNK
     Route: 048
     Dates: start: 20140120, end: 20140223
  15. RBC [Concomitant]
     Active Substance: HUMAN RED BLOOD CELL
     Dosage: 2 U
     Route: 042
     Dates: start: 20140512, end: 20140512
  16. PLATELET [Concomitant]
     Dosage: 2 U, UNK
     Route: 042
     Dates: start: 20140404, end: 20140404
  17. PLATELET [Concomitant]
     Dosage: 2 U, UNK
     Route: 042
     Dates: start: 20140312, end: 20140312
  18. AMN107 [Suspect]
     Active Substance: NILOTINIB
     Dosage: 300 OT
     Route: 042
     Dates: start: 20150216, end: 20150316
  19. RBC [Concomitant]
     Active Substance: HUMAN RED BLOOD CELL
     Dosage: 2 U
     Route: 042
     Dates: start: 20140327, end: 20140327
  20. PLATELET [Concomitant]
     Dosage: 2 U, UNK
     Route: 042
     Dates: start: 20140417, end: 20140417
  21. PLATELET [Concomitant]
     Dosage: 2 U, UNK
     Route: 042
     Dates: start: 20140324, end: 20140324
  22. RBC [Concomitant]
     Active Substance: HUMAN RED BLOOD CELL
     Dosage: 2 U
     Route: 042
     Dates: start: 20140417, end: 20140417
  23. RBC [Concomitant]
     Active Substance: HUMAN RED BLOOD CELL
     Dosage: 2 U
     Route: 042
     Dates: start: 20140519, end: 20140519
  24. PLATELET [Concomitant]
     Dosage: 2 U, UNK
     Route: 042
     Dates: start: 20140410, end: 20140410
  25. PLATELET [Concomitant]
     Dosage: 2 U, UNK
     Route: 042
     Dates: start: 20140318, end: 20140318
  26. RBC [Concomitant]
     Active Substance: HUMAN RED BLOOD CELL
     Dosage: 2 U
     Route: 042
     Dates: start: 20140328, end: 20140328

REACTIONS (3)
  - White blood cell count decreased [Not Recovered/Not Resolved]
  - Thrombocytopenia [Not Recovered/Not Resolved]
  - Anaemia [Not Recovered/Not Resolved]

NARRATIVE: CASE EVENT DATE: 20140210
